FAERS Safety Report 7772490 (Version 5)
Quarter: 2015Q4

REPORT INFORMATION
  Report Type: Spontaneous
  Country: US (occurrence: US)
  Receive Date: 20110125
  Receipt Date: 20151202
  Transmission Date: 20160305
  Serious: Yes (Hospitalization)
  Sender: FDA-Public Use
  Company Number: US-BAYER-2011-007573

PATIENT
  Age: 16 Year
  Sex: Female
  Weight: 55 kg

DRUGS (7)
  1. SUDAFED [Concomitant]
     Active Substance: PSEUDOEPHEDRINE HYDROCHLORIDE
     Indication: SINUS CONGESTION
  2. YASMIN [Suspect]
     Active Substance: DROSPIRENONE\ETHINYL ESTRADIOL
     Indication: ACNE
     Dosage: UNK
     Route: 048
     Dates: start: 200405, end: 200412
  3. YASMIN [Suspect]
     Active Substance: DROSPIRENONE\ETHINYL ESTRADIOL
     Indication: MENORRHAGIA
  4. HEPARIN [Concomitant]
     Active Substance: HEPARIN SODIUM
  5. YASMIN [Suspect]
     Active Substance: DROSPIRENONE\ETHINYL ESTRADIOL
     Indication: DYSFUNCTIONAL UTERINE BLEEDING
  6. IBUPROFEN. [Concomitant]
     Active Substance: IBUPROFEN
     Indication: SINUS CONGESTION
  7. AMOXICILLIN. [Concomitant]
     Active Substance: AMOXICILLIN
     Dosage: UNK
     Dates: start: 200411

REACTIONS (8)
  - Retinal artery thrombosis [None]
  - Product use issue [None]
  - Pain [None]
  - Visual impairment [None]
  - Emotional disorder [None]
  - Headache [None]
  - Blindness unilateral [None]
  - Mental disorder [None]

NARRATIVE: CASE EVENT DATE: 20041210
